FAERS Safety Report 24557457 (Version 2)
Quarter: 2024Q4

REPORT INFORMATION
  Report Type: Spontaneous
  Country: TR (occurrence: TR)
  Receive Date: 20241028
  Receipt Date: 20241031
  Transmission Date: 20250115
  Serious: Yes (Other)
  Sender: GE HEALTHCARE
  Company Number: TR-GE HEALTHCARE-2024CSU012115

PATIENT
  Age: 64 Year
  Sex: Male
  Weight: 70 kg

DRUGS (14)
  1. CLARISCAN [Suspect]
     Active Substance: GADOTERATE MEGLUMINE
     Indication: Magnetic resonance imaging
     Dosage: UNK UNK, TOTAL
     Route: 042
     Dates: start: 20241016, end: 20241016
  2. MAXIPEN [Concomitant]
     Active Substance: PHENETHICILLIN POTASSIUM
     Dosage: 1000 MG
     Route: 042
  3. LINATIN [Concomitant]
     Dosage: 5 MG
     Route: 065
  4. NOPOT [Concomitant]
     Dosage: 880 MG
     Route: 065
  5. BETABLOK SDK [Concomitant]
     Dosage: 50 MG
     Route: 065
  6. NOVORAPID [Concomitant]
     Active Substance: INSULIN ASPART
     Route: 058
  7. PANOCER [Concomitant]
     Dosage: 40 MG
     Route: 065
  8. LANTUS [Concomitant]
     Active Substance: INSULIN GLARGINE
     Route: 058
  9. TRENTAL [Concomitant]
     Active Substance: PENTOXIFYLLINE
     Dosage: 600 MG
  10. CLOPIDOGREL BISULFATE [Concomitant]
     Active Substance: CLOPIDOGREL BISULFATE
     Dosage: 75 MG
     Route: 065
  11. KARDOZIN [Concomitant]
     Dosage: 2 MG
     Route: 065
  12. AMLODIS [Concomitant]
     Dosage: 5 MG, TOTAL
  13. Desal [Concomitant]
     Dosage: 40 MG
     Route: 065
  14. MEROSID [Concomitant]
     Dosage: 1000 MG
     Route: 042

REACTIONS (3)
  - Procalcitonin increased [Not Recovered/Not Resolved]
  - Chills [Not Recovered/Not Resolved]
  - Tremor [Not Recovered/Not Resolved]

NARRATIVE: CASE EVENT DATE: 20241016
